FAERS Safety Report 23433108 (Version 1)
Quarter: 2024Q1

REPORT INFORMATION
  Report Type: Spontaneous
  Country: US (occurrence: None)
  Receive Date: 20240123
  Receipt Date: 20240123
  Transmission Date: 20240409
  Serious: No
  Sender: FDA-Public Use
  Company Number: None

PATIENT
  Age: 32 Year
  Sex: Male

DRUGS (1)
  1. SOGROYA [Suspect]
     Active Substance: SOMAPACITAN-BECO
     Indication: Prader-Willi syndrome
     Dosage: FREQUENCY : WEEKLY;?
     Route: 058
     Dates: start: 202310

REACTIONS (1)
  - Injection site muscle atrophy [None]

NARRATIVE: CASE EVENT DATE: 20240101
